FAERS Safety Report 8390998-1 (Version None)
Quarter: 2012Q2

REPORT INFORMATION
  Report Type: 
  Country: None (occurrence: None)
  Receive Date: 20120529
  Receipt Date: 20120518
  Transmission Date: 20120825
  Serious: No
  Sender: FDA-Public Use
  Company Number: CA-JNJFOC-20120516212

PATIENT
  Sex: Female
  Weight: 66.3 kg

DRUGS (3)
  1. ORTHO TRI-CYCLEN [Concomitant]
     Route: 065
  2. REMICADE [Suspect]
     Indication: CROHN'S DISEASE
     Route: 042
     Dates: start: 20090831
  3. PREDNISONE [Concomitant]
     Route: 065

REACTIONS (2)
  - CYSTITIS [None]
  - HERPES ZOSTER [None]
